APPROVED DRUG PRODUCT: ALENDRONATE SODIUM
Active Ingredient: ALENDRONATE SODIUM
Strength: EQ 70MG BASE/75ML
Dosage Form/Route: SOLUTION;ORAL
Application: A214512 | Product #001 | TE Code: AA
Applicant: NOVITIUM PHARMA LLC
Approved: May 11, 2023 | RLD: No | RS: No | Type: RX